FAERS Safety Report 8607442 (Version 2)
Quarter: 2012Q4

REPORT INFORMATION
  Report Type: 
  Country: US (occurrence: US)
  Receive Date: 20120611
  Receipt Date: 20121019
  Transmission Date: 20130627
  Serious: Yes (Hospitalization)
  Sender: FDA-Public Use
  Company Number: US-US-EMD SERONO, INC.-7136929

PATIENT
  Age: 46 None
  Sex: Female

DRUGS (3)
  1. REBIF [Suspect]
     Indication: PRODUCT USED FOR UNKNOWN INDICATION
     Route: 058
     Dates: start: 20100517
  2. REBIF [Suspect]
     Route: 058
  3. REBIF [Suspect]
     Route: 058

REACTIONS (6)
  - Pneumonia [Recovered/Resolved]
  - Vitamin B complex deficiency [Recovering/Resolving]
  - Vitamin D decreased [Recovering/Resolving]
  - Large intestine polyp [Recovered/Resolved]
  - Influenza [Recovering/Resolving]
  - Anaemia [Recovered/Resolved]
